FAERS Safety Report 8533816-0 (Version None)
Quarter: 2012Q3

REPORT INFORMATION
  Report Type: 
  Country: None (occurrence: None)
  Receive Date: 20120724
  Receipt Date: 20120712
  Transmission Date: 20120928
  Serious: Yes (Other)
  Sender: FDA-Public Use
  Company Number: JP-ROCHE-1063673

PATIENT
  Sex: Female
  Weight: 46 kg

DRUGS (3)
  1. HERCEPTIN [Suspect]
     Route: 041
     Dates: start: 20110101, end: 20120101
  2. HERCEPTIN [Suspect]
     Route: 041
     Dates: start: 20120521, end: 20120521
  3. HERCEPTIN [Suspect]
     Indication: BREAST CANCER METASTATIC
     Dosage: DOSAGE IS UNCERTAIN.
     Route: 041
     Dates: start: 20110421, end: 20110421

REACTIONS (2)
  - OCULAR DYSMETRIA [None]
  - GUILLAIN-BARRE SYNDROME [None]
